FAERS Safety Report 7244328-9 (Version None)
Quarter: 2011Q1

REPORT INFORMATION
  Report Type: 
  Country: None (occurrence: None)
  Receive Date: 20110125
  Receipt Date: 20110117
  Transmission Date: 20110831
  Serious: Yes (Hospitalization)
  Sender: FDA-Public Use
  Company Number: US-ALEXION-A201001676

PATIENT
  Sex: Female

DRUGS (21)
  1. VITAMIN C                          /00008001/ [Concomitant]
  2. TIMOLOL [Concomitant]
  3. CHOLESTYRAMINE [Concomitant]
  4. MULTIVITAMIN                       /01229101/ [Concomitant]
     Dosage: ONE PER DAY
  5. OMEPRAZOLE [Concomitant]
     Dosage: 20 MG, QD
  6. BRIMONIDINE [Concomitant]
  7. NORVASC [Concomitant]
     Dosage: 5 MG, QD
  8. CALCIUM WITH VITAMIN D             /00944201/ [Concomitant]
  9. ASPIRIN [Concomitant]
     Dosage: 81 MG, QD
  10. LUMIGAN [Concomitant]
  11. SOLIRIS [Suspect]
     Indication: PAROXYSMAL NOCTURNAL HAEMOGLOBINURIA
     Dosage: 900 MG, Q2W
     Route: 042
  12. LISINOPRIL [Concomitant]
     Dosage: 20 MG, QD
  13. GLIPIZIDE [Concomitant]
     Dosage: 2.5 MG, BID
  14. COMBIVENT [Concomitant]
     Dosage: 2 PUFFS Q4H PRN
  15. ATENOLOL [Concomitant]
     Dosage: 25 MG, QD
  16. ZOCOR [Concomitant]
     Dosage: 20 MG, QD
  17. LASIX [Concomitant]
     Dosage: 40 MG, QD
  18. OXYCODONE [Concomitant]
     Indication: PAIN
     Dosage: 5 MG, Q4H PRN
  19. ARANESP [Concomitant]
     Dosage: 300 UG, Q2W
     Route: 058
  20. PREDNISONE TAB [Concomitant]
     Dosage: 5 MG, QD
  21. LASIX [Concomitant]
     Dosage: 20 MG, QD

REACTIONS (4)
  - PNEUMONIA [None]
  - CHRONIC OBSTRUCTIVE PULMONARY DISEASE [None]
  - HAEMOLYTIC ANAEMIA [None]
  - ANGINA PECTORIS [None]
